FAERS Safety Report 24724400 (Version 1)
Quarter: 2024Q4

REPORT INFORMATION
  Report Type: Spontaneous
  Country: TH (occurrence: TH)
  Receive Date: 20241212
  Receipt Date: 20241212
  Transmission Date: 20250115
  Serious: Yes (Other)
  Sender: AMGEN
  Company Number: TH-AMGEN-THASP2024239544

PATIENT

DRUGS (1)
  1. BEVACIZUMAB [Suspect]
     Active Substance: BEVACIZUMAB
     Indication: Glaucoma
     Dosage: 1.25 MILLIGRAM

REACTIONS (6)
  - Hypotony of eye [Unknown]
  - Hyphaema [Unknown]
  - Choroidal detachment [Unknown]
  - Conjunctival filtering bleb leak [Unknown]
  - Surgical failure [Unknown]
  - Off label use [Unknown]
